FAERS Safety Report 10248235 (Version 1)
Quarter: 2014Q2

REPORT INFORMATION
  Report Type: Spontaneous
  Country: US (occurrence: AU)
  Receive Date: 20140620
  Receipt Date: 20140620
  Transmission Date: 20141212
  Serious: Yes (Other)
  Sender: FDA-Public Use
  Company Number: 2014SP003228

PATIENT
  Age: 72 Year
  Sex: Female

DRUGS (3)
  1. CARBOPLATIN [Suspect]
     Indication: NON-SMALL CELL LUNG CANCER
  2. GEMCITABINE HYDROCHLORIDE [Suspect]
     Indication: NON-SMALL CELL LUNG CANCER
  3. CRIZOTINIB [Suspect]
     Indication: NON-SMALL CELL LUNG CANCER

REACTIONS (1)
  - Toxicity to various agents [Unknown]
